FAERS Safety Report 9492230 (Version 2)
Quarter: 2013Q3

REPORT INFORMATION
  Report Type: Report from Study
  Country: JP (occurrence: JP)
  Receive Date: 20130830
  Receipt Date: 20130919
  Transmission Date: 20140515
  Serious: Yes (Hospitalization)
  Sender: FDA-Public Use
  Company Number: JP-AMGEN-JPNCT2013061314

PATIENT
  Age: 43 Year
  Sex: Female
  Weight: 52 kg

DRUGS (8)
  1. DENOSUMAB [Suspect]
     Indication: METASTASES TO BONE
     Dosage: 120 MG, UNK
     Route: 058
     Dates: start: 20121227
  2. LOXONIN [Concomitant]
     Dosage: UNK
     Route: 048
     Dates: start: 201211
  3. CALCICHEW D3 [Concomitant]
     Dosage: UNK
     Route: 048
     Dates: start: 20121227
  4. OXYCODONE HYDROCHLORIDE [Concomitant]
     Dosage: 2.5 MG, AS NECESSARY
     Route: 048
     Dates: start: 201211
  5. NOVAMIN [Concomitant]
     Dosage: UNK
     Route: 048
     Dates: start: 201211, end: 20130221
  6. MAGMITT [Concomitant]
     Dosage: UNK
     Route: 048
     Dates: start: 201211
  7. PURSENNIDE [Concomitant]
     Dosage: 24 MG, AS NECESSARY
     Route: 048
     Dates: start: 201211
  8. PARIET [Concomitant]
     Dosage: UNK
     Route: 048
     Dates: start: 201211, end: 20130104

REACTIONS (5)
  - White blood cell count decreased [Recovering/Resolving]
  - Neutrophil count decreased [Recovering/Resolving]
  - Platelet count decreased [Not Recovered/Not Resolved]
  - Hypocalcaemia [Recovered/Resolved]
  - Haemoglobin decreased [Recovered/Resolved]
